FAERS Safety Report 4560888-0 (Version None)
Quarter: 2005Q1

REPORT INFORMATION
  Report Type: 
  Country: None (occurrence: None)
  Receive Date: 20050126
  Receipt Date: 20050114
  Transmission Date: 20050727
  Serious: Yes (Hospitalization)
  Sender: FDA-Public Use
  Company Number: AU-JNJFOC-20050104431

PATIENT
  Sex: Female

DRUGS (4)
  1. TRAMADOL HCL [Suspect]
     Indication: SENSORY DISTURBANCE
     Route: 065
  2. VENLAFAXINE HCL [Interacting]
     Indication: DEPRESSION
     Route: 065
  3. DICLOFENAC SODIUM [Interacting]
     Indication: DRUG USE FOR UNKNOWN INDICATION
     Route: 065
  4. PARACETAMOL [Concomitant]
     Route: 065

REACTIONS (1)
  - DRUG INTERACTION [None]
